FAERS Safety Report 7521801-7 (Version None)
Quarter: 2011Q2

REPORT INFORMATION
  Report Type: 
  Country: None (occurrence: None)
  Receive Date: 20110603
  Receipt Date: 20090930
  Transmission Date: 20111010
  Serious: Yes (Death, Other)
  Sender: FDA-Public Use
  Company Number: US-BAYER-200934395NA

PATIENT
  Age: 47 Year
  Sex: Male

DRUGS (2)
  1. TRASYLOL [Suspect]
     Indication: AORTIC DISSECTION
     Dosage: UNK
     Dates: start: 19971109
  2. TRASYLOL [Suspect]
     Indication: ARTERIAL REPAIR

REACTIONS (14)
  - DEATH [None]
  - ANXIETY [None]
  - UNEVALUABLE EVENT [None]
  - DISABILITY [None]
  - INJURY [None]
  - PAIN [None]
  - RENAL INJURY [None]
  - EMOTIONAL DISTRESS [None]
  - DEPRESSION [None]
  - MULTI-ORGAN FAILURE [None]
  - FEAR [None]
  - ANHEDONIA [None]
  - RENAL FAILURE [None]
  - NERVOUSNESS [None]
